FAERS Safety Report 10926129 (Version 1)
Quarter: 2015Q1

REPORT INFORMATION
  Report Type: Spontaneous
  Country: US (occurrence: None)
  Receive Date: 20150202
  Receipt Date: 20150202
  Transmission Date: 20150721
  Serious: Yes (Other)
  Sender: FDA-Public Use
  Company Number: TPA2012A06988

PATIENT
  Age: 59 Year
  Sex: Female
  Weight: 65.32 kg

DRUGS (2)
  1. METHOTREXATE [Concomitant]
     Active Substance: METHOTREXATE
  2. DEXILANT [Suspect]
     Active Substance: DEXLANSOPRAZOLE
     Indication: ULCER
     Route: 048
     Dates: start: 20120404

REACTIONS (4)
  - Transient ischaemic attack [None]
  - Overdose [None]
  - Confusional state [None]
  - Speech disorder [None]
